FAERS Safety Report 16150393 (Version 1)
Quarter: 2019Q2

REPORT INFORMATION
  Report Type: Spontaneous
  Country: US (occurrence: US)
  Receive Date: 20190402
  Receipt Date: 20190402
  Transmission Date: 20190711
  Serious: Yes (Life-Threatening, Hospitalization)
  Sender: FDA-Public Use
  Company Number: None

PATIENT
  Age: 76 Year
  Sex: Female
  Weight: 80 kg

DRUGS (7)
  1. METOPROLOL SUCCINATE ER 100 MG PO QDAY [Concomitant]
     Active Substance: METOPROLOL SUCCINATE
  2. XARELTO [Suspect]
     Active Substance: RIVAROXABAN
     Indication: ATRIAL FIBRILLATION
     Route: 048
     Dates: end: 20190326
  3. CLOBETASOL TOPICAL 0.05% CREAM 1 APPLICATION TOPICAL MWF [Concomitant]
  4. CANDESARTAN 16 MG PO BID [Concomitant]
  5. LANTANOPROST (XALATAN) 0.005%, 1 DROP, BOTH EYES AT BEDTIME [Concomitant]
  6. ASPIRIN 81 MG PO QDAY [Concomitant]
  7. LIDOCAINE TOPICAL OINTMENT 5% 1 APPLICATION TOPICALLY TWICE DAILY. [Concomitant]

REACTIONS (1)
  - Cerebellar haemorrhage [None]

NARRATIVE: CASE EVENT DATE: 20190326
